FAERS Safety Report 8600017-7 (Version None)
Quarter: 2012Q3

REPORT INFORMATION
  Report Type: 
  Country: None (occurrence: None)
  Receive Date: 20120816
  Receipt Date: 20120806
  Transmission Date: 20120928
  Serious: Yes (Other)
  Sender: FDA-Public Use
  Company Number: CHPA2012US017726

PATIENT
  Age: 66 Year
  Sex: Female

DRUGS (1)
  1. EXCEDRIN PM TABLETS [Suspect]
     Indication: INSOMNIA
     Dosage: 1 OR 2 DF, AT NIGHT
     Route: 048

REACTIONS (4)
  - UNDERDOSE [None]
  - INCORRECT DRUG ADMINISTRATION DURATION [None]
  - FEELING ABNORMAL [None]
  - DRUG DEPENDENCE [None]
